FAERS Safety Report 6146500-8 (Version None)
Quarter: 2009Q2

REPORT INFORMATION
  Report Type: 
  Country: None (occurrence: None)
  Receive Date: 20090407
  Receipt Date: 20090402
  Transmission Date: 20091009
  Serious: Yes (Hospitalization)
  Sender: FDA-Public Use
  Company Number: D0060488A

PATIENT
  Sex: Male

DRUGS (3)
  1. IMIGRAN [Suspect]
     Dosage: 100MG SEE DOSAGE TEXT
     Route: 048
     Dates: start: 20090211, end: 20090211
  2. PROPAFENONE HCL [Suspect]
     Dosage: 150MG SEE DOSAGE TEXT
     Route: 048
     Dates: start: 20090211, end: 20090211
  3. SLEEPING PILLS [Suspect]
     Route: 048
     Dates: start: 20090211, end: 20090211

REACTIONS (3)
  - INTENTIONAL OVERDOSE [None]
  - SUICIDE ATTEMPT [None]
  - VOMITING [None]
